FAERS Safety Report 5249215-3 (Version None)
Quarter: 2007Q1

REPORT INFORMATION
  Report Type: 
  Country: None (occurrence: None)
  Receive Date: 20070223
  Receipt Date: 20070212
  Transmission Date: 20070707
  Serious: Yes (Hospitalization)
  Sender: FDA-Public Use
  Company Number: 2007SP002771

PATIENT
  Age: 34 Year
  Sex: Female
  Weight: 56.2 kg

DRUGS (3)
  1. TEMOZOLOMIDE (S-P) (TEMOZOLOMIDE) [Suspect]
     Indication: ANAPLASTIC ASTROCYTOMA
     Dosage: 320 MG; PO
     Route: 048
     Dates: start: 20061109, end: 20070104
  2. LAMICTAL [Concomitant]
  3. RADIOTHERAPY [Concomitant]

REACTIONS (3)
  - CAECITIS [None]
  - NEUTROPHIL COUNT DECREASED [None]
  - WHITE BLOOD CELL COUNT DECREASED [None]
